FAERS Safety Report 5779975-4 (Version None)
Quarter: 2008Q2

REPORT INFORMATION
  Report Type: 
  Country: None (occurrence: None)
  Receive Date: 20080620
  Receipt Date: 20080611
  Transmission Date: 20081010
  Serious: Yes (Hospitalization)
  Sender: FDA-Public Use
  Company Number: BR-JNJFOC-20080602766

PATIENT
  Age: 18 Year
  Sex: Male
  Weight: 107 kg

DRUGS (3)
  1. RISPERDAL [Suspect]
     Indication: PSYCHOTIC BEHAVIOUR
     Dosage: 2 TABLETS A DAY
  2. AKITENON [Concomitant]
  3. AKITENON [Concomitant]
     Indication: TREMOR
     Dosage: 2 MG A DAY IN THE BEGINNING AND LATER, 1 MG A DAY

REACTIONS (8)
  - ABNORMAL BEHAVIOUR [None]
  - DENGUE FEVER [None]
  - EATING DISORDER [None]
  - FEELING HOT [None]
  - HYPERTENSION [None]
  - NEUROLEPTIC MALIGNANT SYNDROME [None]
  - POOR QUALITY SLEEP [None]
  - VOMITING [None]
